FAERS Safety Report 9684865 (Version 1)
Quarter: 2013Q4

REPORT INFORMATION
  Report Type: Spontaneous
  Country: US (occurrence: US)
  Receive Date: 20131112
  Receipt Date: 20131112
  Transmission Date: 20140711
  Serious: No
  Sender: FDA-Public Use
  Company Number: US-SANOFI-AVENTIS-2013SA007826

PATIENT
  Sex: Male

DRUGS (1)
  1. GAVISCON [Suspect]
     Indication: DYSPEPSIA

REACTIONS (4)
  - Dyspepsia [Recovered/Resolved]
  - Expired drug administered [Recovered/Resolved]
  - Paraesthesia oral [Recovered/Resolved]
  - Feeling abnormal [Recovered/Resolved]
